FAERS Safety Report 20135452 (Version 1)
Quarter: 2021Q4

REPORT INFORMATION
  Report Type: Spontaneous
  Country: US (occurrence: US)
  Receive Date: 20211201
  Receipt Date: 20211201
  Transmission Date: 20220303
  Serious: Yes (Hospitalization)
  Sender: FDA-Public Use
  Company Number: US-KARYOPHARM-2021KPT001487

PATIENT

DRUGS (11)
  1. XPOVIO [Suspect]
     Active Substance: SELINEXOR
     Indication: Diffuse large B-cell lymphoma
     Dosage: 60 MG, WEEKLY
     Route: 048
     Dates: start: 20211004
  2. ATENOLOL [Concomitant]
     Active Substance: ATENOLOL
  3. CLONIDINE [Concomitant]
     Active Substance: CLONIDINE
  4. CRESTOR [Concomitant]
     Active Substance: ROSUVASTATIN CALCIUM
  5. FERROUS SULFATE [Concomitant]
     Active Substance: FERROUS SULFATE
  6. HEPARIN [Concomitant]
     Active Substance: HEPARIN SODIUM
  7. LASIX [Concomitant]
     Active Substance: FUROSEMIDE
  8. METHIMAZOLE [Concomitant]
     Active Substance: METHIMAZOLE
  9. NEULASTA [Concomitant]
     Active Substance: PEGFILGRASTIM
  10. PROCHLORPERAZINE [Concomitant]
     Active Substance: PROCHLORPERAZINE
  11. ZOFRAN [Concomitant]
     Active Substance: ONDANSETRON HYDROCHLORIDE

REACTIONS (1)
  - Urinary tract infection [Unknown]

NARRATIVE: CASE EVENT DATE: 20211101
